FAERS Safety Report 7675434-2 (Version None)
Quarter: 2011Q3

REPORT INFORMATION
  Report Type: 
  Country: None (occurrence: None)
  Receive Date: 20110810
  Receipt Date: 20110728
  Transmission Date: 20111222
  Serious: No
  Sender: FDA-Public Use
  Company Number: US-B.I. PHARMACEUTICALS,INC./RIDGEFIELD-2011-BP-18748BP

PATIENT
  Sex: Female

DRUGS (8)
  1. PRADAXA [Suspect]
     Indication: ATRIAL FIBRILLATION
     Dosage: 300 MG
     Route: 048
     Dates: start: 20110714
  2. LEVOTHYROXINE SODIUM [Concomitant]
     Route: 048
  3. DIGOXIN [Concomitant]
     Indication: ATRIAL FIBRILLATION
     Route: 048
  4. RYTHMOL [Concomitant]
     Indication: ATRIAL FIBRILLATION
     Route: 048
  5. XANAX [Concomitant]
     Route: 048
  6. TOPROL-XL [Concomitant]
     Route: 048
  7. TRILIPIX [Concomitant]
     Route: 048
  8. SIMVASTATIN [Concomitant]
     Route: 048

REACTIONS (1)
  - APPETITE DISORDER [None]
